FAERS Safety Report 7496460-2 (Version None)
Quarter: 2011Q2

REPORT INFORMATION
  Report Type: 
  Country: None (occurrence: None)
  Receive Date: 20110523
  Receipt Date: 20090401
  Transmission Date: 20111010
  Serious: Yes (Hospitalization)
  Sender: FDA-Public Use
  Company Number: CA-ROCHE-582012

PATIENT
  Sex: Male
  Weight: 62.4 kg

DRUGS (19)
  1. TOCILIZUMAB [Suspect]
     Dosage: PREVIOUSLY ENROLLED IN WA17822 ARM A
     Route: 042
  2. GOLD INJECTION [Suspect]
     Route: 030
  3. ASCORBIC ACID [Concomitant]
     Dates: start: 20020101
  4. TOCILIZUMAB [Suspect]
     Route: 042
  5. TOCILIZUMAB [Suspect]
     Route: 042
  6. METFORMIN [Concomitant]
     Dates: start: 20051101
  7. ALTACE [Concomitant]
  8. FOLIC ACID [Concomitant]
     Dates: start: 20030401
  9. ASPIRIN [Concomitant]
     Dosage: DRUG NAME: ASA
     Dates: start: 20030201
  10. LIPITOR [Concomitant]
  11. TYLENOL W/ CODEINE NO. 3 [Concomitant]
     Dates: start: 20030101
  12. TOCILIZUMAB [Suspect]
     Indication: RHEUMATOID ARTHRITIS
     Dosage: FORM: LIQUID
     Route: 042
     Dates: start: 20060705, end: 20080903
  13. METHOTREXATE [Concomitant]
     Dates: start: 20030501
  14. GLUCOSAMINE [Concomitant]
     Dates: start: 20060926
  15. AVAPRO [Concomitant]
     Dates: start: 20040401
  16. NORVASC [Concomitant]
     Dates: start: 20030101
  17. ALTACE [Concomitant]
     Dates: start: 20030101
  18. PRILOSEC [Concomitant]
     Dates: start: 20030101
  19. MULTI-VITAMINS [Concomitant]
     Dates: start: 20060926

REACTIONS (2)
  - SYNCOPE [None]
  - ACUTE CORONARY SYNDROME [None]
